FAERS Safety Report 6870855-X (Version None)
Quarter: 2010Q3

REPORT INFORMATION
  Report Type: 
  Country: None (occurrence: None)
  Receive Date: 20100723
  Receipt Date: 20100716
  Transmission Date: 20110219
  Serious: Yes (Other)
  Sender: FDA-Public Use
  Company Number: JP-SHIRE-SPV1-2010-01301

PATIENT

DRUGS (1)
  1. FOSRENOL [Suspect]
     Indication: HYPERPHOSPHATAEMIA
     Route: 048
     Dates: start: 20100316, end: 20100612

REACTIONS (1)
  - LARGE INTESTINE PERFORATION [None]
